FAERS Safety Report 7860822-1 (Version None)
Quarter: 2011Q4

REPORT INFORMATION
  Report Type: 
  Country: None (occurrence: None)
  Receive Date: 20111025
  Receipt Date: 20111014
  Transmission Date: 20120403
  Serious: Yes (Death)
  Sender: FDA-Public Use
  Company Number: MPS1-1000575

PATIENT
  Age: 13 Year
  Sex: Male

DRUGS (3)
  1. BENADRYL [Concomitant]
  2. ALDURAZYME [Suspect]
     Indication: MUCOPOLYSACCHARIDOSIS
     Dosage: 17.4 MG, QW, INTRAVENOUS
     Route: 042
     Dates: start: 20100101, end: 20110927
  3. HYDROCORTISONE [Concomitant]

REACTIONS (6)
  - TACHYPNOEA [None]
  - CHEST PAIN [None]
  - CARDIAC ARREST [None]
  - SINUSITIS [None]
  - INFARCTION [None]
  - INFUSION RELATED REACTION [None]
